FAERS Safety Report 5568877-4 (Version None)
Quarter: 2007Q4

REPORT INFORMATION
  Report Type: 
  Country: None (occurrence: None)
  Receive Date: 20071220
  Receipt Date: 20070222
  Transmission Date: 20080405
  Serious: No
  Sender: FDA-Public Use
  Company Number: A0640607A

PATIENT
  Age: 68 Year
  Sex: Male

DRUGS (7)
  1. AVODART [Suspect]
     Indication: BENIGN PROSTATIC HYPERPLASIA
     Dosage: .5MG PER DAY
     Route: 048
  2. GLUCOSAMINE + CHONDROITIN [Concomitant]
  3. PRINIVIL [Concomitant]
  4. CELEBREX [Concomitant]
  5. ASPIRIN [Concomitant]
  6. EXTEROL [Concomitant]
  7. ZYRTEC [Concomitant]

REACTIONS (2)
  - DIZZINESS [None]
  - HEADACHE [None]
